FAERS Safety Report 7552390-9 (Version None)
Quarter: 2011Q2

REPORT INFORMATION
  Report Type: 
  Country: None (occurrence: None)
  Receive Date: 20110616
  Receipt Date: 20090916
  Transmission Date: 20111010
  Serious: Yes (Hospitalization, Disabling, Other)
  Sender: FDA-Public Use
  Company Number: PHFR2007GB00982

PATIENT
  Sex: Male

DRUGS (10)
  1. CLOZAPINE [Suspect]
     Indication: SCHIZOPHRENIA
     Dosage: 700 MG, DAILY
     Route: 048
     Dates: start: 20060105
  2. VALPROATE SODIUM [Concomitant]
     Indication: MOOD ALTERED
     Dosage: 300 MG, DAILY
     Route: 048
     Dates: start: 20060921
  3. VALPROATE SODIUM [Concomitant]
     Dosage: 200 MG, DAILY
     Route: 048
  4. LORAZEPAM [Concomitant]
     Indication: ANXIETY
     Dosage: 2 MG, DAILY
     Route: 048
     Dates: start: 20020201
  5. MIRTAZAPINE [Concomitant]
     Indication: DEPRESSION
     Dosage: 30 MG, DAILY
     Route: 048
     Dates: start: 20060901
  6. OMEPRAZOLE [Concomitant]
     Indication: GASTRITIS
     Dosage: 40 MG, DAILY
     Route: 048
     Dates: start: 20050101
  7. ACETAMINOPHEN [Concomitant]
     Indication: MUSCULOSKELETAL PAIN
     Dosage: 3 G, DAILY
     Route: 048
     Dates: start: 20070201
  8. AMISULPRIDE [Concomitant]
     Dosage: 200 MG, QD
     Route: 048
  9. LORAZEPAM [Concomitant]
     Dosage: 5 DF, ONCE
     Route: 048
  10. AMISULPRIDE [Concomitant]
     Indication: PSYCHOTIC DISORDER
     Dosage: 400 MG, DAILY
     Route: 048
     Dates: start: 20060901

REACTIONS (8)
  - ACTIVATED PARTIAL THROMBOPLASTIN TIME PROLONGED [None]
  - SYSTEMIC LUPUS ERYTHEMATOSUS [None]
  - INTENTIONAL OVERDOSE [None]
  - CEREBROVASCULAR ACCIDENT [None]
  - APHASIA [None]
  - RUSSELL'S VIPER VENOM TIME ABNORMAL [None]
  - ANTIPHOSPHOLIPID SYNDROME [None]
  - HEMIPARESIS [None]
